FAERS Safety Report 4630249-4 (Version None)
Quarter: 2005Q2

REPORT INFORMATION
  Report Type: 
  Country: None (occurrence: None)
  Receive Date: 20050405
  Receipt Date: 20050405
  Transmission Date: 20051028
  Serious: Yes (Hospitalization)
  Sender: FDA-Public Use
  Company Number: None

PATIENT
  Age: 66 Year
  Sex: Male

DRUGS (12)
  1. BEVACIZUMAB [Suspect]
     Indication: METASTATIC NEOPLASM
     Dosage: 15 MG/KG EVERY 21 DAYS IV
     Route: 042
     Dates: start: 20031106
  2. PEG-INTRON [Suspect]
     Indication: METASTATIC NEOPLASM
     Dosage: 0.5 MCG/K EVERY 7 DAYS SQ
     Route: 058
     Dates: start: 20031205
  3. LISINOPRIL [Concomitant]
  4. PREVACID [Concomitant]
  5. COREG [Concomitant]
  6. SANDOSTATIN [Concomitant]
  7. CATAPRES [Concomitant]
  8. PROTINEX [Concomitant]
  9. ASPIRIN [Concomitant]
  10. CREON [Concomitant]
  11. VIT E [Concomitant]
  12. M.V.I. [Concomitant]

REACTIONS (2)
  - HEADACHE [None]
  - HYPERTENSION [None]
